FAERS Safety Report 15570814 (Version 1)
Quarter: 2018Q4

REPORT INFORMATION
  Report Type: Spontaneous
  Country: US (occurrence: US)
  Receive Date: 20181031
  Receipt Date: 20181031
  Transmission Date: 20190205
  Serious: Yes (Hospitalization)
  Sender: FDA-Public Use
  Company Number: None

PATIENT
  Age: 83 Year
  Sex: Male
  Weight: 112.5 kg

DRUGS (10)
  1. BICALUTAMIDE 50MG [Concomitant]
     Active Substance: BICALUTAMIDE
  2. ATENOLOL-CHLORTHALIDONE 50-25MG [Concomitant]
  3. CALCIUM + VIDTAMIN D 3 [Concomitant]
  4. LYRICA [Concomitant]
     Active Substance: PREGABALIN
  5. ERLEADA [Suspect]
     Active Substance: APALUTAMIDE
     Indication: PRODUCT USED FOR UNKNOWN INDICATION
     Route: 048
     Dates: start: 20180809
  6. CARBIDOPA-LEVODOPA ER 25-100MG [Concomitant]
  7. ACETAMINOPHONE [Concomitant]
  8. CELEBREX 100MG [Concomitant]
  9. DIPHENHIST 25MG [Concomitant]
  10. ASPIRIN 81MG [Concomitant]
     Active Substance: ASPIRIN

REACTIONS (3)
  - Asthenia [None]
  - Pyrexia [None]
  - Localised infection [None]

NARRATIVE: CASE EVENT DATE: 20181030
